FAERS Safety Report 17230657 (Version 1)
Quarter: 2020Q1

REPORT INFORMATION
  Report Type: Report from Study
  Country: NL (occurrence: NL)
  Receive Date: 20200103
  Receipt Date: 20200103
  Transmission Date: 20200409
  Serious: Yes (Death)
  Sender: FDA-Public Use
  Company Number: NVSC2019NL084801

PATIENT
  Age: 68 Year
  Sex: Male

DRUGS (3)
  1. ACLASTA [Suspect]
     Active Substance: ZOLEDRONIC ACID
     Indication: OSTEOPOROSIS
     Dosage: 5MG/100ML, ONCE EVERY 52 WEEKS
     Route: 042
     Dates: start: 20160816
  2. ACLASTA [Suspect]
     Active Substance: ZOLEDRONIC ACID
     Dosage: 5MG/100ML, ONCE EVERY 52 WEEKS
     Route: 042
     Dates: start: 20180829
  3. ACLASTA [Suspect]
     Active Substance: ZOLEDRONIC ACID
     Dosage: 5MG/100ML, ONCE EVERY 52 WEEKS
     Route: 042
     Dates: start: 20170829

REACTIONS (1)
  - Death [Fatal]

NARRATIVE: CASE EVENT DATE: 20190810
